FAERS Safety Report 16454403 (Version 1)
Quarter: 2019Q2

REPORT INFORMATION
  Report Type: Spontaneous
  Country: US (occurrence: US)
  Receive Date: 20190619
  Receipt Date: 20190619
  Transmission Date: 20190711
  Serious: No
  Sender: FDA-Public Use
  Company Number: US-ROCHE-2221875

PATIENT
  Sex: Female

DRUGS (7)
  1. FISH OIL [Concomitant]
     Active Substance: FISH OIL
  2. HYDROCHLOROTHIAZIDE. [Concomitant]
     Active Substance: HYDROCHLOROTHIAZIDE
  3. METHOTREXATE. [Concomitant]
     Active Substance: METHOTREXATE
  4. LEVOTHYROXIN [Concomitant]
     Active Substance: LEVOTHYROXINE
  5. NORVASC [Concomitant]
     Active Substance: AMLODIPINE BESYLATE
  6. FOLIC ACID. [Concomitant]
     Active Substance: FOLIC ACID
  7. ACTEMRA [Suspect]
     Active Substance: TOCILIZUMAB
     Indication: RHEUMATOID ARTHRITIS
     Route: 058
     Dates: start: 20180411

REACTIONS (1)
  - Ear infection [Unknown]
